FAERS Safety Report 10158613 (Version 1)
Quarter: 2014Q2

REPORT INFORMATION
  Report Type: Spontaneous
  Country: FR (occurrence: FR)
  Receive Date: 20140508
  Receipt Date: 20140508
  Transmission Date: 20141212
  Serious: Yes (Other)
  Sender: FDA-Public Use
  Company Number: PHHY2014FR054071

PATIENT
  Age: 4 Year
  Sex: Male
  Weight: 16.6 kg

DRUGS (8)
  1. CYTARABINE EBEWE [Suspect]
     Indication: ACUTE LYMPHOCYTIC LEUKAEMIA
     Dosage: 70 MG, UNK
     Route: 042
     Dates: start: 20121022, end: 20121105
  2. DOXORUBICIN [Suspect]
     Indication: ACUTE LYMPHOCYTIC LEUKAEMIA
     Dosage: 14.75 MG, UNK
     Route: 042
     Dates: start: 20120925, end: 20121208
  3. LEDERTREXATE [Suspect]
     Indication: ACUTE LYMPHOCYTIC LEUKAEMIA
     Dosage: 10 MG, UNK
     Route: 037
     Dates: start: 20121122
  4. VINCRISTIN TEVA [Suspect]
     Indication: ACUTE LYMPHOCYTIC LEUKAEMIA
     Dosage: 0.81 MG, UNK
     Route: 042
     Dates: start: 20120603
  5. KIDROLASE [Suspect]
     Indication: ACUTE LYMPHOCYTIC LEUKAEMIA
     Dosage: 3240 IU, UNK
     Route: 042
     Dates: start: 20120605
  6. ELDISINE [Suspect]
     Indication: ACUTE LYMPHOCYTIC LEUKAEMIA
     Dosage: 1.77 MG, UNK
     Route: 065
     Dates: start: 20120926, end: 20121008
  7. MABTHERA [Suspect]
     Indication: ACUTE LYMPHOCYTIC LEUKAEMIA
     Dosage: 217.5 MG, UNK
     Route: 042
     Dates: start: 20130212, end: 20130226
  8. ETOPOPHOS [Suspect]
     Indication: ACUTE LYMPHOCYTIC LEUKAEMIA
     Dosage: 88.5 MG, UNK
     Route: 042
     Dates: start: 20121022, end: 20121029

REACTIONS (1)
  - Encephalopathy [Not Recovered/Not Resolved]
